FAERS Safety Report 8203663-8 (Version None)
Quarter: 2012Q1

REPORT INFORMATION
  Report Type: 
  Country: None (occurrence: None)
  Receive Date: 20120308
  Receipt Date: 20120227
  Transmission Date: 20120608
  Serious: Yes (Other)
  Sender: FDA-Public Use
  Company Number: DSU-2012-01569

PATIENT
  Age: 55 Year
  Sex: Male

DRUGS (2)
  1. TRIBENZOR [Suspect]
     Indication: HYPERTENSION
     Dosage: 40/5/25MG (QD), PER ORAL
     Route: 048
  2. LOTREL [Concomitant]

REACTIONS (3)
  - BLOOD PRESSURE DECREASED [None]
  - VISUAL IMPAIRMENT [None]
  - EYE DISORDER [None]
